FAERS Safety Report 24426590 (Version 5)
Quarter: 2024Q4

REPORT INFORMATION
  Report Type: Spontaneous
  Country: JP (occurrence: JP)
  Receive Date: 20241011
  Receipt Date: 20241203
  Transmission Date: 20250115
  Serious: Yes (Other)
  Sender: GENMAB
  Company Number: JP-GENMAB-2024-03681

PATIENT
  Age: 69 Year
  Sex: Female

DRUGS (7)
  1. EPKINLY [Suspect]
     Active Substance: EPCORITAMAB-BYSP
     Indication: Diffuse large B-cell lymphoma refractory
     Dosage: 0.16 MILLIGRAM, SINGLE
     Route: 058
     Dates: start: 20241001, end: 20241001
  2. EPKINLY [Suspect]
     Active Substance: EPCORITAMAB-BYSP
     Dosage: 0.8 MILLIGRAM, SINGLE
     Route: 058
     Dates: start: 20241008, end: 20241008
  3. EPKINLY [Suspect]
     Active Substance: EPCORITAMAB-BYSP
     Dosage: 48 MILLIGRAM, WEEKLY, TOTAL NUMBER OF DOSES: THREE TIMES
     Route: 058
     Dates: start: 20241015, end: 20241106
  4. DEXAMETHASONE SODIUM PHOSPHATE [Concomitant]
     Active Substance: DEXAMETHASONE SODIUM PHOSPHATE
     Indication: Prophylaxis
     Dosage: UNK, ON DAY 2, DAY 3 AND DAY 4 OF ADMINISTRATION OF EPKINLY, FROM THE FIRST DOSE IN CYCLE 1 TO THE F
     Dates: start: 20241001, end: 2024
  5. DIPHENHYDRAMINE [Concomitant]
     Active Substance: DIPHENHYDRAMINE
     Indication: Prophylaxis
     Dosage: 50 MILLIGRAM, ON DAY 1 OF ADMINISTRATION OF EPKINLY, FROM THE FIRST DOSE IN CYCLE 1 TO THE FIRST DOS
     Dates: start: 20241001, end: 2024
  6. CALONAL [Concomitant]
     Active Substance: ACETAMINOPHEN
     Indication: Prophylaxis
     Dosage: 1000 MILLIGRAM, ON DAY 1 OF ADMINISTRATION OF EPKINLY, FROM THE FIRST TO THE FOURTH DOSE IN CYCLE 1
     Dates: start: 20241001, end: 2024
  7. ACETAMINOPHEN [Concomitant]
     Active Substance: ACETAMINOPHEN
     Indication: Prophylaxis
     Dosage: 1000 MILLIGRAM, ON DAY 1 OF ADMINISTRATION OF EPKINLY, AT THE FIRST DOSE IN CYCLE 2
     Dates: start: 2024, end: 2024

REACTIONS (3)
  - Diffuse large B-cell lymphoma refractory [Unknown]
  - Cytokine release syndrome [Recovered/Resolved]
  - Therapeutic product effect incomplete [Not Recovered/Not Resolved]

NARRATIVE: CASE EVENT DATE: 20241001
